FAERS Safety Report 5828581-1 (Version None)
Quarter: 2008Q3

REPORT INFORMATION
  Report Type: 
  Country: None (occurrence: None)
  Receive Date: 20080729
  Receipt Date: 20080729
  Transmission Date: 20090109
  Serious: Yes (Hospitalization)
  Sender: FDA-Public Use
  Company Number: None

PATIENT
  Age: 50 Year
  Sex: Male
  Weight: 76 kg

DRUGS (7)
  1. GLEEVEC [Suspect]
     Indication: GLIOBLASTOMA
     Dosage: 500 MG BID PO
     Route: 048
     Dates: start: 20080617
  2. HYDROXYUREA [Suspect]
     Indication: GLIOBLASTOMA MULTIFORME
     Dosage: 500 MG, BID PO
     Route: 048
     Dates: start: 20080617
  3. RAD001 [Suspect]
     Indication: GLIOBLASTOMA MULTIFORME
     Dosage: 2.5MG QOD PO
     Route: 048
     Dates: start: 20080617
  4. NEXIUM [Concomitant]
  5. DEXAMETHASONE [Concomitant]
  6. DILANTIN [Concomitant]
  7. BACTRIM [Concomitant]

REACTIONS (3)
  - LOBAR PNEUMONIA [None]
  - LUNG INFECTION [None]
  - PLEURAL EFFUSION [None]
